FAERS Safety Report 7236577-0 (Version None)
Quarter: 2011Q1

REPORT INFORMATION
  Report Type: 
  Country: None (occurrence: None)
  Receive Date: 20110120
  Receipt Date: 20110113
  Transmission Date: 20110831
  Serious: Yes (Death, Hospitalization)
  Sender: FDA-Public Use
  Company Number: ZA-PFIZER INC-ZA-WYE-H17776510

PATIENT
  Age: 76 Year
  Sex: Male
  Weight: 78 kg

DRUGS (8)
  1. PARACETAMOL [Concomitant]
     Dosage: UNK
     Route: 065
     Dates: start: 20100725
  2. SULPIRIDE [Concomitant]
     Indication: DEPRESSION
     Dosage: UNK
     Route: 065
     Dates: start: 20090701
  3. VITAMINS NOS [Concomitant]
     Indication: VITAMIN SUPPLEMENTATION
     Dosage: UNK
     Route: 065
     Dates: start: 20100701
  4. PARACETAMOL [Concomitant]
     Indication: PAIN
     Dosage: UNK
     Route: 065
     Dates: start: 20100722
  5. TEMSIROLIMUS [Suspect]
     Indication: RENAL CELL CARCINOMA
     Dosage: 25 MG, 1X/WK
     Route: 042
     Dates: start: 20100714, end: 20100927
  6. *BEVACIZUMAB [Suspect]
     Indication: RENAL CELL CARCINOMA
     Dosage: 10 MG, 1X/2WK
     Route: 042
     Dates: start: 20100714, end: 20100927
  7. CYCLIZINE LACTATE [Concomitant]
     Indication: NAUSEA
     Dosage: UNK
     Route: 065
     Dates: start: 20100819
  8. FERRIMED [Concomitant]
     Indication: VITAMIN SUPPLEMENTATION
     Dosage: UNK
     Route: 065
     Dates: start: 20100701

REACTIONS (3)
  - BRONCHOPNEUMONIA [None]
  - DEHYDRATION [None]
  - VOMITING [None]
